FAERS Safety Report 6826295-2 (Version None)
Quarter: 2010Q3

REPORT INFORMATION
  Report Type: 
  Country: None (occurrence: None)
  Receive Date: 20100709
  Receipt Date: 20100628
  Transmission Date: 20110219
  Serious: Yes (Other)
  Sender: FDA-Public Use
  Company Number: JP-PFIZER INC-2010084645

PATIENT
  Age: 67 Year
  Sex: Female
  Weight: 48 kg

DRUGS (4)
  1. CAMPTOSAR [Suspect]
     Indication: COLORECTAL CANCER
     Dosage: 200 MG (146 MG/M2)
     Route: 041
     Dates: start: 20091209, end: 20100310
  2. CAMPTOSAR [Suspect]
     Dosage: 140 MG (102.2 MG/M2)
     Route: 041
     Dates: start: 20100324, end: 20100506
  3. CALCIUM LEVOFOLINATE [Concomitant]
     Indication: COLORECTAL CANCER
     Dosage: 275 MG (200.7 MG/M2)
     Route: 041
     Dates: start: 20091209, end: 20100506
  4. FLUOROURACIL [Concomitant]
     Indication: COLORECTAL CANCER
     Dosage: 3250 MG (2372.3 MG/M2)
     Route: 041
     Dates: start: 20091209, end: 20100506

REACTIONS (2)
  - DECREASED APPETITE [None]
  - DIARRHOEA [None]
